FAERS Safety Report 24895970 (Version 1)
Quarter: 2025Q1

REPORT INFORMATION
  Report Type: Report from Study
  Country: US (occurrence: US)
  Receive Date: 20250128
  Receipt Date: 20250128
  Transmission Date: 20250408
  Serious: Yes (Other)
  Sender: JOHNSON AND JOHNSON
  Company Number: US-JNJFOC-20250156174

PATIENT

DRUGS (2)
  1. TECVAYLI [Suspect]
     Active Substance: TECLISTAMAB-CQYV
     Indication: Plasma cell myeloma refractory
  2. TOCILIZUMAB [Concomitant]
     Active Substance: TOCILIZUMAB

REACTIONS (13)
  - Thrombocytopenia [Unknown]
  - Anaemia [Unknown]
  - Lymphopenia [Unknown]
  - Hypogammaglobulinaemia [Unknown]
  - Cytokine release syndrome [Unknown]
  - Immune effector cell-associated neurotoxicity syndrome [Unknown]
  - Leukopenia [Unknown]
  - Cytomegalovirus colitis [Unknown]
  - Cytomegalovirus infection reactivation [Unknown]
  - Fatigue [Unknown]
  - Hepatic function abnormal [Unknown]
  - Pyrexia [Unknown]
  - Cytomegalovirus syndrome [Unknown]
